FAERS Safety Report 24849839 (Version 1)
Quarter: 2025Q1

REPORT INFORMATION
  Report Type: Spontaneous
  Country: US (occurrence: None)
  Receive Date: 20250115
  Receipt Date: 20250115
  Transmission Date: 20250409
  Serious: Yes (Disabling)
  Sender: FDA-CTU
  Company Number: None

PATIENT
  Age: 47 Year
  Sex: Female
  Weight: 88.65 kg

DRUGS (6)
  1. BUDESONIDE\LEVOFLOXACIN [Suspect]
     Active Substance: BUDESONIDE\LEVOFLOXACIN
     Dosage: 1 CAPSULE TWICE A DAY RESPIRATORY (INHALATION) ?
     Route: 055
     Dates: start: 20240118, end: 20240120
  2. FLUOXETINE [Concomitant]
     Active Substance: FLUOXETINE HYDROCHLORIDE
  3. FEXOFENADINE [Concomitant]
     Active Substance: FEXOFENADINE HYDROCHLORIDE
  4. MONTELUKAST [Concomitant]
     Active Substance: MONTELUKAST
  5. MELATONIN [Concomitant]
     Active Substance: MELATONIN
  6. Culturelle Probiotics [Concomitant]

REACTIONS (7)
  - Burning sensation [None]
  - Persistent postural-perceptual dizziness [None]
  - Conversion disorder [None]
  - Vestibular migraine [None]
  - Muscular weakness [None]
  - Pain in extremity [None]
  - Tic [None]

NARRATIVE: CASE EVENT DATE: 20240118
